FAERS Safety Report 5174704-X (Version None)
Quarter: 2006Q4

REPORT INFORMATION
  Report Type: 
  Country: None (occurrence: None)
  Receive Date: 20061206
  Receipt Date: 20060920
  Transmission Date: 20070319
  Serious: Yes (Hospitalization, Other)
  Sender: FDA-Public Use
  Company Number: 2006144410

PATIENT
  Age: 33 Year
  Sex: Female

DRUGS (9)
  1. DOSTINEX [Suspect]
     Indication: ADENOMA BENIGN
     Dosage: (0.5 MG, 3 IN 1 WK), ORAL
     Route: 048
     Dates: start: 20050301
  2. SALBUTAMOL SULFATE [Concomitant]
  3. BECLOMETHASONE DIPROPIONATE [Concomitant]
  4. ACETAMINOPHEN [Concomitant]
  5. ASPEGIC 1000 [Concomitant]
  6. ELEVIT VITAMINE B9 (MINERALS NOS, VITAMINS NOS) [Concomitant]
  7. MAGNESIUM [Concomitant]
  8. CHLORHEXIDINE [Concomitant]
  9. ANTIBIO-SYNALAR (FLUOCINOLONE ACETONIDE, NEOMYCIN SULFATE, POLYMYXIN B [Concomitant]

REACTIONS (7)
  - CAESAREAN SECTION [None]
  - DRUG EXPOSURE DURING PREGNANCY [None]
  - EAR INFECTION [None]
  - FUNGAL INFECTION [None]
  - PHARYNGITIS [None]
  - RHINITIS [None]
  - TOOTH ABSCESS [None]
